FAERS Safety Report 12066783 (Version 2)
Quarter: 2016Q2

REPORT INFORMATION
  Report Type: Spontaneous
  Country: US (occurrence: US)
  Receive Date: 20160210
  Receipt Date: 20160426
  Transmission Date: 20160815
  Serious: No
  Sender: FDA-Public Use
  Company Number: US-JNJFOC-20160115152

PATIENT
  Sex: Male

DRUGS (1)
  1. RISPERDAL [Suspect]
     Active Substance: RISPERIDONE
     Indication: ATTENTION DEFICIT/HYPERACTIVITY DISORDER
     Dosage: VARYING DOSE OF 0.25 MG TO 2 MG
     Route: 048
     Dates: start: 2002, end: 2004

REACTIONS (5)
  - Gynaecomastia [Unknown]
  - Off label use [Unknown]
  - Product use issue [Unknown]
  - Emotional disorder [Unknown]
  - Weight increased [Unknown]

NARRATIVE: CASE EVENT DATE: 2002
